FAERS Safety Report 5229779-6 (Version None)
Quarter: 2007Q1

REPORT INFORMATION
  Report Type: 
  Country: None (occurrence: None)
  Receive Date: 20070206
  Receipt Date: 20070124
  Transmission Date: 20070707
  Serious: Yes (Death, Other)
  Sender: FDA-Public Use
  Company Number: US-PFIZER INC-2006123749

PATIENT
  Sex: Female
  Weight: 99.8 kg

DRUGS (13)
  1. GEODON [Suspect]
     Indication: OBSESSIVE-COMPULSIVE DISORDER
  2. GEODON [Suspect]
     Indication: PSYCHOTIC DISORDER
  3. PAXIL [Suspect]
     Dosage: DAILY DOSE:80MG
     Route: 048
     Dates: start: 19980101, end: 20020101
  4. SEROQUEL [Suspect]
     Indication: OBSESSIVE-COMPULSIVE DISORDER
     Dosage: DAILY DOSE:400MG-FREQ:100MG IN MORNING, 300MG IN EVENING
     Route: 048
     Dates: end: 20060201
  5. SEROQUEL [Suspect]
     Indication: PSYCHOTIC DISORDER
  6. VICODIN [Concomitant]
  7. XANAX [Concomitant]
  8. DESMOPRESSIN [Concomitant]
  9. FLEXERIL [Concomitant]
  10. KLONOPIN [Concomitant]
  11. CELEXA [Concomitant]
  12. EFFEXOR XR [Concomitant]
     Dosage: DAILY DOSE:150MG
     Route: 048
  13. NEURONTIN [Concomitant]
     Route: 048

REACTIONS (3)
  - CARDITIS [None]
  - MYOCARDIAL INFARCTION [None]
  - PANIC REACTION [None]
